FAERS Safety Report 18261927 (Version 1)
Quarter: 2020Q3

REPORT INFORMATION
  Report Type: Spontaneous
  Country: US (occurrence: US)
  Receive Date: 20200914
  Receipt Date: 20200914
  Transmission Date: 20201103
  Serious: Yes (Life-Threatening, Hospitalization)
  Sender: FDA-Public Use
  Company Number: US-MYLANLABS-2020M1078295

PATIENT
  Sex: Female

DRUGS (9)
  1. NEVIRAPINE. [Suspect]
     Active Substance: NEVIRAPINE
     Indication: PROPHYLAXIS AGAINST HIV INFECTION
     Dosage: PARENT ROUTE NOT APPLICABLE; ADMINISTERED AT THE NEONATAL STAGE.
     Route: 065
  2. LAMIVUDINE. [Suspect]
     Active Substance: LAMIVUDINE
     Indication: PROPHYLAXIS AGAINST HIV INFECTION
     Dosage: PARENT ROUTE NOT APPLICABLE; ADMINISTERED AT THE NEONATAL STAGE.
     Route: 065
  3. EMTRICITABINE [Suspect]
     Active Substance: EMTRICITABINE
     Indication: HIV INFECTION
     Route: 064
  4. ZIDOVUDINE. [Suspect]
     Active Substance: ZIDOVUDINE
     Indication: PROPHYLAXIS AGAINST HIV INFECTION
     Dosage: PARENT ROUTE NOT APPLICABLE; ADMINISTERED AT THE NEONATAL STAGE.
     Route: 065
  5. TENOFOVIR DISOPROXIL [Suspect]
     Active Substance: TENOFOVIR DISOPROXIL
     Indication: HIV INFECTION
     Route: 064
  6. ZIDOVUDINE. [Suspect]
     Active Substance: ZIDOVUDINE
     Indication: PROPHYLAXIS AGAINST HIV INFECTION
     Route: 064
  7. AMPICILLIN [Concomitant]
     Active Substance: AMPICILLIN
     Indication: PRODUCT USED FOR UNKNOWN INDICATION
     Dosage: PARENT ROUTE NOT APPLICABLE; ADMINISTERED AT THE NEONATAL STAGE
     Route: 065
  8. GENTAMICIN. [Concomitant]
     Active Substance: GENTAMICIN
     Indication: PRODUCT USED FOR UNKNOWN INDICATION
     Dosage: PARENT ROUTE NOT APPLICABLE; ADMINISTERED AT THE NEONATAL STAGE.
     Route: 065
  9. DOLUTEGRAVIR [Suspect]
     Active Substance: DOLUTEGRAVIR
     Indication: HIV INFECTION
     Route: 064

REACTIONS (12)
  - Hepatitis [Recovering/Resolving]
  - Liver injury [Recovering/Resolving]
  - Hyperbilirubinaemia [Recovering/Resolving]
  - Respiratory distress [Recovering/Resolving]
  - Lactic acidosis [Recovering/Resolving]
  - Right ventricular dysfunction [Recovering/Resolving]
  - Hypoglycaemia [Recovering/Resolving]
  - Hydrops foetalis [Recovering/Resolving]
  - Pericardial effusion [Recovering/Resolving]
  - Ascites [Recovering/Resolving]
  - Microvascular coronary artery disease [Recovering/Resolving]
  - Foetal exposure during pregnancy [Recovered/Resolved]
